FAERS Safety Report 23016355 (Version 2)
Quarter: 2023Q4

REPORT INFORMATION
  Report Type: Spontaneous
  Country: US (occurrence: US)
  Receive Date: 20231002
  Receipt Date: 20231016
  Transmission Date: 20240110
  Serious: No
  Sender: FDA-Public Use
  Company Number: US-Blueprint Medicines Corporation-1493

PATIENT
  Sex: Female

DRUGS (2)
  1. AYVAKIT [Suspect]
     Active Substance: AVAPRITINIB
     Indication: Gastrointestinal stromal tumour
     Route: 065
     Dates: start: 20230713
  2. AYVAKIT [Suspect]
     Active Substance: AVAPRITINIB
     Route: 065
     Dates: start: 20230713, end: 20231009

REACTIONS (9)
  - Adverse drug reaction [Unknown]
  - Drug ineffective [Unknown]
  - Albinism [Unknown]
  - Hair colour changes [Unknown]
  - Rash [Unknown]
  - Epistaxis [Unknown]
  - Menopause [Unknown]
  - Weight decreased [Unknown]
  - Vomiting [Unknown]
